FAERS Safety Report 8983260 (Version 2)
Quarter: 2013Q3

REPORT INFORMATION
  Report Type: Report from Study
  Country: MX (occurrence: MX)
  Receive Date: 20121224
  Receipt Date: 20130801
  Transmission Date: 20140515
  Serious: Yes (Other)
  Sender: FDA-Public Use
  Company Number: PHHY2012MX118253

PATIENT
  Age: 62 Year
  Sex: Female

DRUGS (6)
  1. CO-DIOVAN [Suspect]
     Indication: HYPERTENSION
     Dosage: 1 DF (80/12.5 MG) AILY
     Route: 048
     Dates: start: 200904
  2. TRILEPTAL [Suspect]
     Indication: EPILEPSY
     Dosage: 3 DF, DAILY
     Dates: start: 200904
  3. TRILEPTAL [Suspect]
     Indication: VIITH NERVE PARALYSIS
     Dosage: 1 DF, Q72H
  4. GALVUS [Suspect]
     Dosage: UNK UKN, UNK
  5. GALVUS MET [Suspect]
     Indication: DIABETES MELLITUS
     Dosage: 1 DF, Q12H
  6. METFORMIN [Concomitant]
     Indication: DIABETES MELLITUS
     Dosage: 2 DF, DAILY
     Dates: start: 200904

REACTIONS (8)
  - Hernia [Recovering/Resolving]
  - Hernia pain [Recovered/Resolved]
  - Cholelithiasis [Recovered/Resolved]
  - Uterine inflammation [Recovered/Resolved]
  - Hydrometra [Recovered/Resolved]
  - Paraesthesia [Recovering/Resolving]
  - Blood pressure increased [Recovered/Resolved]
  - Nervousness [Recovered/Resolved]
